FAERS Safety Report 17076788 (Version 1)
Quarter: 2019Q4

REPORT INFORMATION
  Report Type: Spontaneous
  Country: TR (occurrence: TR)
  Receive Date: 20191126
  Receipt Date: 20191126
  Transmission Date: 20200122
  Serious: Yes (Hospitalization)
  Sender: FDA-Public Use
  Company Number: TR-BAUSCH-BL-2019-061545

PATIENT
  Age: 7 Year
  Sex: Female

DRUGS (1)
  1. ENALAPRIL [Suspect]
     Active Substance: ENALAPRIL
     Indication: NEPHROTIC SYNDROME
     Dosage: CONTINUOUSLY
     Route: 065

REACTIONS (1)
  - Drug-induced liver injury [Recovered/Resolved]
